FAERS Safety Report 14402525 (Version 4)
Quarter: 2019Q3

REPORT INFORMATION
  Report Type: Report from Study
  Country: US (occurrence: US)
  Receive Date: 20180117
  Receipt Date: 20190809
  Transmission Date: 20191004
  Serious: Yes (Hospitalization)
  Sender: FDA-Public Use
  Company Number: US-ACTELION-A-NJ2017-160984

PATIENT
  Age: 67 Year
  Sex: Male
  Weight: 46.71 kg

DRUGS (4)
  1. WARFARIN [Concomitant]
     Active Substance: WARFARIN
  2. UPTRAVI [Suspect]
     Active Substance: SELEXIPAG
     Indication: PULMONARY HYPERTENSION
     Dosage: 600 MCG, BID
     Route: 048
  3. LETAIRIS [Concomitant]
     Active Substance: AMBRISENTAN
  4. ADCIRCA [Concomitant]
     Active Substance: TADALAFIL

REACTIONS (18)
  - Arthralgia [Unknown]
  - Cough [Unknown]
  - Wheezing [Unknown]
  - Diarrhoea [Unknown]
  - Peripheral swelling [Not Recovered/Not Resolved]
  - Abdominal pain [Unknown]
  - Rhinorrhoea [Unknown]
  - Epistaxis [Unknown]
  - Myalgia [Unknown]
  - Pyrexia [Unknown]
  - Asthenia [Unknown]
  - Frequent bowel movements [Unknown]
  - Gout [Unknown]
  - Dizziness [Unknown]
  - Headache [Not Recovered/Not Resolved]
  - Pain in extremity [Not Recovered/Not Resolved]
  - Dry mouth [Not Recovered/Not Resolved]
  - Weight decreased [Unknown]

NARRATIVE: CASE EVENT DATE: 20171213
